FAERS Safety Report 17960387 (Version 1)
Quarter: 2020Q2

REPORT INFORMATION
  Report Type: Spontaneous
  Country: NO (occurrence: NO)
  Receive Date: 20200629
  Receipt Date: 20200629
  Transmission Date: 20200714
  Serious: Yes (Hospitalization, Disabling, Other)
  Sender: FDA-Public Use
  Company Number: NVSC2020NO175639

PATIENT
  Age: 74 Year
  Sex: Male

DRUGS (23)
  1. METHOTREXATE SODIUM. [Suspect]
     Active Substance: METHOTREXATE SODIUM
     Indication: DIFFUSE LARGE B-CELL LYMPHOMA
     Dosage: 6 CYCLES (ACCORDING TO NATIONAL GUIDELINES)
     Route: 037
     Dates: start: 20190409
  2. CYTARABINE. [Suspect]
     Active Substance: CYTARABINE
     Indication: DIFFUSE LARGE B-CELL LYMPHOMA
     Dosage: 6 CYCLES (ACCORDING TO NATIONAL GUIDELINES)
     Route: 037
     Dates: start: 20190409
  3. ACICLOVIR [Concomitant]
     Active Substance: ACYCLOVIR
     Indication: PRODUCT USED FOR UNKNOWN INDICATION
     Dosage: 200 MG
     Route: 065
  4. LAKTULOSE [Concomitant]
     Indication: PRODUCT USED FOR UNKNOWN INDICATION
     Dosage: 15 ML, PRN (AS NEEDED)
     Route: 065
  5. VINCRISTINE [Concomitant]
     Active Substance: VINCRISTINE
     Indication: DIFFUSE LARGE B-CELL LYMPHOMA
     Dosage: 2 MG, CYCLIC (6 CYCLES R-MINICHOP AT REDUCED DOSE)
     Route: 065
     Dates: start: 20190409, end: 20190805
  6. ALLOPUR [Concomitant]
     Active Substance: ALLOPURINOL
     Indication: PRODUCT USED FOR UNKNOWN INDICATION
     Dosage: 300 MG
     Route: 065
  7. PREDNISOLON [Suspect]
     Active Substance: PREDNISOLONE
     Indication: DIFFUSE LARGE B-CELL LYMPHOMA
     Dosage: 6 CYCLES (ACCORDING TO NATIONAL GUIDELINES)
     Route: 037
     Dates: start: 20190409
  8. PREDNISOLON [Suspect]
     Active Substance: PREDNISOLONE
     Indication: PROPHYLAXIS
     Dosage: 50 MG, CYCLIC  (6 CYCLES R-MINICHOP AT REDUCED DOSE)
     Route: 065
     Dates: start: 20190409
  9. MAGNESIUM [Concomitant]
     Active Substance: MAGNESIUM
     Indication: PRODUCT USED FOR UNKNOWN INDICATION
     Dosage: 350 MG
     Route: 065
  10. QUETIAPIN [Concomitant]
     Active Substance: QUETIAPINE
     Indication: PRODUCT USED FOR UNKNOWN INDICATION
     Dosage: 100 MG, PRN (AS NEEDED)
     Route: 065
  11. DIFLUCAN [Concomitant]
     Active Substance: FLUCONAZOLE
     Indication: PRODUCT USED FOR UNKNOWN INDICATION
     Dosage: 100 MG
     Route: 065
  12. ALBYL-E [Concomitant]
     Active Substance: ASPIRIN\MAGNESIUM OXIDE
     Indication: PRODUCT USED FOR UNKNOWN INDICATION
     Dosage: 75 MG
     Route: 065
  13. AFIPRAN [Concomitant]
     Active Substance: METOCLOPRAMIDE HYDROCHLORIDE
     Indication: PRODUCT USED FOR UNKNOWN INDICATION
     Dosage: 10 MG, PRN (AS NEEDED)
     Route: 065
  14. BACTRIM [Concomitant]
     Active Substance: SULFAMETHOXAZOLE\TRIMETHOPRIM
     Indication: PRODUCT USED FOR UNKNOWN INDICATION
     Dosage: UNK
     Route: 065
  15. REMERON [Concomitant]
     Active Substance: MIRTAZAPINE
     Indication: PRODUCT USED FOR UNKNOWN INDICATION
     Dosage: 30 MG
     Route: 065
  16. SOBRIL [Concomitant]
     Active Substance: OXAZEPAM
     Indication: PRODUCT USED FOR UNKNOWN INDICATION
     Dosage: 10 MG, PRN (AS NEEDED)
     Route: 065
  17. RITUXIMAB. [Concomitant]
     Active Substance: RITUXIMAB
     Indication: DIFFUSE LARGE B-CELL LYMPHOMA
     Dosage: 660 MG, CYCLIC (6 CYCLES R-MINICHOP AT REDUCED DOSE)
     Route: 065
     Dates: start: 20190409, end: 20190805
  18. ONDANSETRON [Concomitant]
     Active Substance: ONDANSETRON
     Indication: PROPHYLAXIS
     Dosage: 8 MG, CYCLIC (6 CYCLES R-MINICHOP AT REDUCED DOSE)
     Route: 065
     Dates: start: 20190409, end: 20190805
  19. DEXAMETHASONE. [Concomitant]
     Active Substance: DEXAMETHASONE
     Indication: PRODUCT USED FOR UNKNOWN INDICATION
     Dosage: 2 MG
     Route: 065
  20. OXYCONTIN [Concomitant]
     Active Substance: OXYCODONE HYDROCHLORIDE
     Indication: PRODUCT USED FOR UNKNOWN INDICATION
     Dosage: 10 MG
     Route: 065
  21. ATORVASTATIN [Concomitant]
     Active Substance: ATORVASTATIN
     Indication: PRODUCT USED FOR UNKNOWN INDICATION
     Dosage: 20 MG
     Route: 065
  22. CYKLOFOSFAMID [Concomitant]
     Active Substance: CYCLOPHOSPHAMIDE
     Indication: DIFFUSE LARGE B-CELL LYMPHOMA
     Dosage: 1300 MG, CYCLIC (6 CYCLES R-MINICHOP AT REDUCED DOSE)
     Route: 065
     Dates: start: 20190409, end: 20190805
  23. OXYNORM [Concomitant]
     Active Substance: OXYCODONE HYDROCHLORIDE
     Indication: PRODUCT USED FOR UNKNOWN INDICATION
     Dosage: 5 MG, PRN (AS NEEDED)
     Route: 065

REACTIONS (16)
  - Balance disorder [Not Recovered/Not Resolved]
  - Dysstasia [Not Recovered/Not Resolved]
  - Psychiatric symptom [Unknown]
  - Urinary tract infection [Unknown]
  - Infection [Recovered/Resolved]
  - Spinal cord paralysis [Not Recovered/Not Resolved]
  - Decubitus ulcer [Recovering/Resolving]
  - Sensory disturbance [Unknown]
  - Malaise [Unknown]
  - Fear of falling [Unknown]
  - Sensory loss [Unknown]
  - Urinary incontinence [Unknown]
  - Anal incontinence [Unknown]
  - Mobility decreased [Unknown]
  - Gait disturbance [Not Recovered/Not Resolved]
  - Myelopathy [Not Recovered/Not Resolved]

NARRATIVE: CASE EVENT DATE: 2019
